FAERS Safety Report 9849710 (Version 1)
Quarter: 2014Q1

REPORT INFORMATION
  Report Type: Spontaneous
  Country: US (occurrence: None)
  Receive Date: 20140127
  Receipt Date: 20140127
  Transmission Date: 20141002
  Serious: Yes (Hospitalization)
  Sender: FDA-Public Use
  Company Number: None

PATIENT
  Sex: Male
  Weight: 74.7 kg

DRUGS (2)
  1. WARFARIN [Suspect]
     Indication: PULMONARY EMBOLISM
     Route: 048
     Dates: start: 20131211, end: 20140114
  2. ASPIRIN [Suspect]
     Route: 048
     Dates: end: 20140114

REACTIONS (5)
  - Hypotension [None]
  - Dehydration [None]
  - Gastric disorder [None]
  - Anaemia [None]
  - Haemorrhage [None]
